FAERS Safety Report 25218823 (Version 1)
Quarter: 2025Q2

REPORT INFORMATION
  Report Type: Spontaneous
  Country: US (occurrence: US)
  Receive Date: 20250421
  Receipt Date: 20250421
  Transmission Date: 20250716
  Serious: Yes (Other)
  Sender: TAKEDA
  Company Number: US-TAKEDA-2025TUS035677

PATIENT
  Sex: Female
  Weight: 57 kg

DRUGS (14)
  1. HYQVIA [Suspect]
     Active Substance: HUMAN IMMUNOGLOBULIN G\HYALURONIDASE (HUMAN RECOMBINANT)
     Indication: Primary immunodeficiency syndrome
  2. HYQVIA [Suspect]
     Active Substance: HUMAN IMMUNOGLOBULIN G\HYALURONIDASE (HUMAN RECOMBINANT)
  3. HYQVIA [Suspect]
     Active Substance: HUMAN IMMUNOGLOBULIN G\HYALURONIDASE (HUMAN RECOMBINANT)
  4. AMLODIPINE [Concomitant]
     Active Substance: AMLODIPINE BESYLATE
     Indication: Hypertension
  5. Rescue [Concomitant]
  6. Vest [Concomitant]
     Indication: Bronchiectasis
  7. PREDNISONE [Concomitant]
     Active Substance: PREDNISONE
  8. LIPITOR [Concomitant]
     Active Substance: ATORVASTATIN CALCIUM
     Indication: Coronary artery disease
  9. LOSARTAN [Concomitant]
     Active Substance: LOSARTAN
     Indication: Hypertension
  10. CLONAZEPAM [Concomitant]
     Active Substance: CLONAZEPAM
     Dosage: 3 MILLIGRAM, QD
  11. EFFEXOR [Concomitant]
     Active Substance: VENLAFAXINE HYDROCHLORIDE
  12. ZITHROMAX [Concomitant]
     Active Substance: AZITHROMYCIN DIHYDRATE
     Indication: Prophylaxis
     Dosage: UNK UNK, 3/WEEK
  13. ZITHROMAX [Concomitant]
     Active Substance: AZITHROMYCIN DIHYDRATE
     Indication: Bronchiectasis
  14. ZITHROMAX [Concomitant]
     Active Substance: AZITHROMYCIN DIHYDRATE
     Indication: Bronchitis chronic

REACTIONS (18)
  - Convulsions local [Unknown]
  - Muscle contracture [Unknown]
  - Inflammation [Unknown]
  - Feeling abnormal [Unknown]
  - Hypopnoea [Unknown]
  - Gait disturbance [Unknown]
  - Spinal pain [Unknown]
  - Dehydration [Unknown]
  - Myalgia intercostal [Unknown]
  - Atelectasis [Unknown]
  - Blood sodium decreased [Unknown]
  - Muscular weakness [Unknown]
  - Localised oedema [Unknown]
  - Musculoskeletal chest pain [Unknown]
  - Back pain [Unknown]
  - Oedema peripheral [Unknown]
  - Swelling [Unknown]
  - Dyspnoea [Unknown]
